FAERS Safety Report 12838092 (Version 1)
Quarter: 2016Q4

REPORT INFORMATION
  Report Type: Spontaneous
  Country: US (occurrence: US)
  Receive Date: 20161012
  Receipt Date: 20161012
  Transmission Date: 20170207
  Serious: No
  Sender: FDA-Public Use
  Company Number: US-BAYER-2016-195255

PATIENT
  Age: 2 Year
  Sex: Male
  Weight: 12.25 kg

DRUGS (1)
  1. CHILDREN CLARITIN ALLERGY [Suspect]
     Active Substance: LORATADINE
     Indication: SNEEZING
     Dosage: 0.5 TEASPOON, QD
     Route: 048

REACTIONS (2)
  - Product use issue [Recovered/Resolved]
  - Failure of child resistant mechanism for pharmaceutical product [Recovered/Resolved]

NARRATIVE: CASE EVENT DATE: 20161007
